FAERS Safety Report 7247044-2 (Version None)
Quarter: 2011Q1

REPORT INFORMATION
  Report Type: 
  Country: None (occurrence: None)
  Receive Date: 20110127
  Receipt Date: 20110124
  Transmission Date: 20110831
  Serious: Yes (Death)
  Sender: FDA-Public Use
  Company Number: JP-SANOFI-AVENTIS-2010SA057909

PATIENT
  Age: 74 Year
  Sex: Male
  Weight: 63 kg

DRUGS (16)
  1. TAXOTERE [Suspect]
     Indication: PROSTATE CANCER
     Route: 042
     Dates: start: 20100226, end: 20100226
  2. TAXOTERE [Suspect]
     Route: 042
     Dates: start: 20100617, end: 20100617
  3. URINARY ANTISPASMODICS [Concomitant]
     Indication: POLLAKIURIA
     Route: 048
     Dates: start: 20080714
  4. GRANISETRON HCL [Concomitant]
     Dates: start: 20100415, end: 20100415
  5. GRANISETRON HCL [Concomitant]
     Dates: start: 20100506, end: 20100617
  6. TAXOTERE [Suspect]
     Route: 042
     Dates: start: 20100415, end: 20100415
  7. DEXAMETHASONE [Concomitant]
     Indication: PROSTATE CANCER
     Route: 048
     Dates: start: 20091106
  8. UROLOGICALS [Concomitant]
     Indication: DYSURIA
     Route: 048
     Dates: start: 20090126
  9. LEUPLIN [Concomitant]
     Indication: PROSTATE CANCER
     Dates: start: 20080401
  10. TAXOTERE [Suspect]
     Route: 042
     Dates: start: 20100325, end: 20100325
  11. ESTRACYT [Concomitant]
     Indication: PROSTATE CANCER
     Route: 048
     Dates: start: 20091204
  12. ZOMETA [Concomitant]
     Indication: METASTASES TO BONE
     Dosage: EVERY 4 WEEKS
     Route: 042
     Dates: start: 20100617
  13. GRANISETRON HCL [Concomitant]
     Dates: start: 20100325, end: 20100325
  14. GRANISETRON HCL [Concomitant]
     Indication: PREMEDICATION
     Dates: start: 20100226, end: 20100226
  15. GRANISETRON HCL [Concomitant]
     Dates: start: 20100617, end: 20100617
  16. TAXOTERE [Suspect]
     Route: 042
     Dates: start: 20100506, end: 20100506

REACTIONS (1)
  - INTERSTITIAL LUNG DISEASE [None]
